FAERS Safety Report 4836530-8 (Version None)
Quarter: 2005Q4

REPORT INFORMATION
  Report Type: 
  Country: None (occurrence: None)
  Receive Date: 20051118
  Receipt Date: 20051102
  Transmission Date: 20060501
  Serious: Yes (Hospitalization)
  Sender: FDA-Public Use
  Company Number: DSA_27357_2005

PATIENT
  Age: 81 Year
  Sex: Female

DRUGS (7)
  1. TEMESTA [Suspect]
     Dosage: 30 MG ONCE PO
     Route: 048
     Dates: start: 20050927, end: 20050927
  2. MONICOR L.P. [Concomitant]
  3. KARDEGIC [Concomitant]
  4. ISOPTIN [Concomitant]
  5. NEXIUM [Concomitant]
  6. SERMION [Concomitant]
  7. ZOLOFT [Concomitant]

REACTIONS (4)
  - COMA [None]
  - HYPOTONIA [None]
  - INTENTIONAL OVERDOSE [None]
  - MIOSIS [None]
